FAERS Safety Report 13587930 (Version 2)
Quarter: 2017Q3

REPORT INFORMATION
  Report Type: Spontaneous
  Country: GB (occurrence: GB)
  Receive Date: 20170527
  Receipt Date: 20170731
  Transmission Date: 20171127
  Serious: Yes (Other)
  Sender: FDA-Public Use
  Company Number: GB-ACCORD-051683

PATIENT
  Age: 73 Year
  Sex: Male
  Weight: 67.58 kg

DRUGS (2)
  1. RANITIDINE. [Concomitant]
     Active Substance: RANITIDINE
     Dosage: AT NIGHT
  2. TRAMADOL/TRAMADOL HYDROCHLORIDE [Suspect]
     Active Substance: TRAMADOL HYDROCHLORIDE
     Indication: ANALGESIC THERAPY
     Dosage: START DOSE: 50 MG, 3 TIMES A DAY (09-MAR-2017 TO 13-MAR-2017)
     Route: 048
     Dates: start: 20170309, end: 20170331

REACTIONS (6)
  - Drug dependence [Recovered/Resolved]
  - Influenza like illness [Recovered/Resolved]
  - Suicidal ideation [Recovered/Resolved]
  - Withdrawal syndrome [Recovered/Resolved]
  - Feeling abnormal [Recovered/Resolved]
  - Anxiety [Recovered/Resolved]

NARRATIVE: CASE EVENT DATE: 20170330
